FAERS Safety Report 8296142-3 (Version None)
Quarter: 2012Q2

REPORT INFORMATION
  Report Type: 
  Country: None (occurrence: None)
  Receive Date: 20120418
  Receipt Date: 20120413
  Transmission Date: 20120825
  Serious: Yes (Other)
  Sender: FDA-Public Use
  Company Number: JP-GLAXOSMITHKLINE-B0789012A

PATIENT
  Sex: Female

DRUGS (4)
  1. LENDORMIN [Concomitant]
     Indication: INSOMNIA
     Dosage: .25MG PER DAY
     Route: 048
     Dates: start: 20120216
  2. PAXIL [Suspect]
     Indication: ADJUSTMENT DISORDER
     Dosage: 10MG PER DAY
     Route: 048
     Dates: start: 20120224, end: 20120306
  3. SILECE [Concomitant]
     Indication: INSOMNIA
     Dosage: 1MG PER DAY
     Route: 048
     Dates: start: 20120224
  4. DEPAS [Concomitant]
     Indication: DEPRESSION
     Dosage: 1.5MG PER DAY
     Route: 048
     Dates: start: 20120216

REACTIONS (5)
  - LOGORRHOEA [None]
  - ABNORMAL BEHAVIOUR [None]
  - ANGER [None]
  - HYPOMANIA [None]
  - PSYCHOMOTOR HYPERACTIVITY [None]
